FAERS Safety Report 5632065-3 (Version None)
Quarter: 2008Q1

REPORT INFORMATION
  Report Type: 
  Country: None (occurrence: None)
  Receive Date: 20080220
  Receipt Date: 20080215
  Transmission Date: 20080703
  Serious: Yes (Hospitalization)
  Sender: FDA-Public Use
  Company Number: A0706149A

PATIENT

DRUGS (1)
  1. PARNATE [Suspect]
     Indication: DRUG USE FOR UNKNOWN INDICATION
     Dosage: 10MG UNKNOWN
     Route: 048

REACTIONS (3)
  - ANXIETY [None]
  - APATHY [None]
  - SUICIDAL IDEATION [None]
